FAERS Safety Report 22202831 (Version 1)
Quarter: 2023Q2

REPORT INFORMATION
  Report Type: Spontaneous
  Country: US (occurrence: None)
  Receive Date: 20230412
  Receipt Date: 20230412
  Transmission Date: 20230721
  Serious: Yes (Congenital Anomaly, Other)
  Sender: FDA-Public Use
  Company Number: None

PATIENT
  Age: 34 Year
  Sex: Female

DRUGS (1)
  1. METHOTREXATE [Suspect]
     Active Substance: METHOTREXATE

REACTIONS (4)
  - Exposure during pregnancy [None]
  - Abortion spontaneous [None]
  - Illness [None]
  - Immune system disorder [None]

NARRATIVE: CASE EVENT DATE: 20230215
